FAERS Safety Report 12491707 (Version 2)
Quarter: 2016Q3

REPORT INFORMATION
  Report Type: Spontaneous
  Country: US (occurrence: US)
  Receive Date: 20160623
  Receipt Date: 20160822
  Transmission Date: 20161109
  Serious: No
  Sender: FDA-Public Use
  Company Number: US-PFIZER INC-2016312470

PATIENT

DRUGS (1)
  1. CHANTIX [Suspect]
     Active Substance: VARENICLINE TARTRATE
     Dosage: 1 DF, SINGLE (ONLY TOOK ONE PILL)

REACTIONS (3)
  - Vomiting [Unknown]
  - Headache [Unknown]
  - Weight decreased [Unknown]
